FAERS Safety Report 12178886 (Version 1)
Quarter: 2016Q1

REPORT INFORMATION
  Report Type: Spontaneous
  Country: US (occurrence: None)
  Receive Date: 20160314
  Receipt Date: 20160314
  Transmission Date: 20160526
  Serious: No
  Sender: FDA-Public Use
  Company Number: None

PATIENT
  Age: 53 Year
  Sex: Male

DRUGS (1)
  1. SOVALDI [Suspect]
     Active Substance: SOFOSBUVIR
     Indication: CHRONIC HEPATITIS B
     Route: 048
     Dates: start: 20160210

REACTIONS (4)
  - Fatigue [None]
  - Accidental overdose [None]
  - Drug dose omission [None]
  - Decreased appetite [None]

NARRATIVE: CASE EVENT DATE: 20160310
